FAERS Safety Report 9646222 (Version 3)
Quarter: 2014Q1

REPORT INFORMATION
  Report Type: Spontaneous
  Country: US (occurrence: US)
  Receive Date: 20131025
  Receipt Date: 20140123
  Transmission Date: 20141002
  Serious: Yes (Hospitalization, Disabling, Other)
  Sender: FDA-Public Use
  Company Number: US-009507513-1310USA010660

PATIENT
  Sex: Female
  Weight: 122.45 kg

DRUGS (1)
  1. NUVARING [Suspect]
     Indication: CONTRACEPTION
     Dosage: UNK
     Route: 067
     Dates: start: 20120316, end: 20121221

REACTIONS (11)
  - Thromboembolectomy [Unknown]
  - Pulmonary embolism [Unknown]
  - Deep vein thrombosis [Unknown]
  - Embolism [Unknown]
  - Cardiac operation [Unknown]
  - Breast mass [Unknown]
  - Fibula fracture [Unknown]
  - Acute respiratory failure [Unknown]
  - Haemorrhagic anaemia [Unknown]
  - Anxiety [Unknown]
  - Right ventricular dysfunction [Unknown]
